FAERS Safety Report 6994342-3 (Version None)
Quarter: 2010Q3

REPORT INFORMATION
  Report Type: 
  Country: None (occurrence: None)
  Receive Date: 20100917
  Receipt Date: 20100917
  Transmission Date: 20110219
  Serious: Yes (Other)
  Sender: FDA-Public Use
  Company Number: US-PFIZER INC-2010084703

PATIENT
  Age: 69 Year
  Sex: Male

DRUGS (5)
  1. VIAGRA [Suspect]
     Dosage: 100 MG, UNK
     Dates: start: 20100209, end: 20100620
  2. BENICAR [Concomitant]
     Dosage: 20 MG, 1X/DAY
     Route: 048
     Dates: end: 20100620
  3. CRESTOR [Concomitant]
     Dosage: 10 MG, 1X/DAY
     Route: 048
     Dates: end: 20100620
  4. FINASTERIDE [Concomitant]
     Dosage: 5 MG, 1X/DAY
     Route: 048
     Dates: end: 20100620
  5. ACETYLSALICYLIC ACID [Concomitant]
     Dosage: 81 MG, 1X/DAY
     Route: 048
     Dates: end: 20100620

REACTIONS (2)
  - DEAFNESS [None]
  - OEDEMA PERIPHERAL [None]
